FAERS Safety Report 24016310 (Version 1)
Quarter: 2024Q2

REPORT INFORMATION
  Report Type: Spontaneous
  Country: US (occurrence: US)
  Receive Date: 20240626
  Receipt Date: 20240626
  Transmission Date: 20240716
  Serious: No
  Sender: FDA-Public Use
  Company Number: US-SA-SAC20240620000985

PATIENT
  Sex: Male
  Weight: 77.11 kg

DRUGS (11)
  1. DUPIXENT [Suspect]
     Active Substance: DUPILUMAB
     Indication: Dermatitis atopic
     Dosage: 300 MG, QOW
     Route: 058
  2. HALOBETASOL PROPIONATE [Concomitant]
     Active Substance: HALOBETASOL PROPIONATE
  3. PREDNISONE [Concomitant]
     Active Substance: PREDNISONE
  4. DOXYCYCLINE HYCLATE [Concomitant]
     Active Substance: DOXYCYCLINE HYCLATE
  5. OPZELURA [Concomitant]
     Active Substance: RUXOLITINIB PHOSPHATE
  6. DEXAMETHASONE [Concomitant]
     Active Substance: DEXAMETHASONE
  7. FLUOCINONIDE [Concomitant]
     Active Substance: FLUOCINONIDE
  8. FINACEA [Concomitant]
     Active Substance: AZELAIC ACID
  9. DEVICE [Concomitant]
     Active Substance: DEVICE
  10. DESOXIMETASONE [Concomitant]
     Active Substance: DESOXIMETASONE
  11. BETAMETHASONE DIPROPIONATE [Concomitant]
     Active Substance: BETAMETHASONE DIPROPIONATE

REACTIONS (1)
  - Dermatitis atopic [Unknown]
